FAERS Safety Report 10075444 (Version 2)
Quarter: 2015Q1

REPORT INFORMATION
  Report Type: Spontaneous
  Country: US (occurrence: None)
  Receive Date: 20140318
  Receipt Date: 20150121
  Transmission Date: 20150720
  Serious: Yes (Other)
  Sender: FDA-Public Use
  Company Number: 2013SA065767

PATIENT
  Age: 57 Year
  Sex: Female

DRUGS (6)
  1. AUBAGIO [Suspect]
     Active Substance: TERIFLUNOMIDE
     Indication: MULTIPLE SCLEROSIS
     Dosage: 7 MILLIGRAM(S); DAILY; ORAL
     Route: 048
     Dates: start: 20130307
  2. COPAXONE [Concomitant]
     Active Substance: GLATIRAMER ACETATE
  3. BACLOFEN. [Concomitant]
     Active Substance: BACLOFEN
  4. TYSABRI [Concomitant]
     Active Substance: NATALIZUMAB
  5. TEGRETOL [Concomitant]
     Active Substance: CARBAMAZEPINE
  6. REBIF [Concomitant]
     Active Substance: INTERFERON BETA-1A

REACTIONS (9)
  - Amnesia [None]
  - Deafness [None]
  - Muscular weakness [None]
  - Hypoaesthesia [None]
  - Lethargy [None]
  - Burning sensation [None]
  - Asthenia [None]
  - Feeling abnormal [None]
  - Paraesthesia [None]
